FAERS Safety Report 8282591-6 (Version None)
Quarter: 2012Q2

REPORT INFORMATION
  Report Type: 
  Country: None (occurrence: None)
  Receive Date: 20120413
  Receipt Date: 20120120
  Transmission Date: 20120825
  Serious: Yes (Hospitalization)
  Sender: FDA-Public Use
  Company Number: US-UCBSA-039009

PATIENT
  Age: 50 Year
  Sex: Male
  Weight: 122 kg

DRUGS (13)
  1. CERTOLIZUMAB PEGOL [Suspect]
     Indication: PSORIATIC ARTHROPATHY
     Dosage: 200 MG
     Route: 058
     Dates: start: 20101215, end: 20110810
  2. ULTRAM [Concomitant]
     Indication: PSORIATIC ARTHROPATHY
     Route: 048
     Dates: start: 20100901
  3. TRIAMCINOLONE [Concomitant]
     Indication: PSORIASIS
     Dosage: 1 APP
     Route: 061
     Dates: start: 20110323
  4. FOLIC ACID [Concomitant]
     Indication: PROPHYLAXIS
     Route: 048
     Dates: start: 20101215
  5. PIROXICAM [Concomitant]
     Indication: PSORIATIC ARTHROPATHY
     Route: 048
     Dates: start: 20100901
  6. METHOTREXATE [Concomitant]
     Indication: PSORIATIC ARTHROPATHY
     Route: 048
     Dates: start: 20100520
  7. FLONASE [Concomitant]
     Indication: SINUS DISORDER
     Dosage: 2 SPRAYS
     Route: 045
     Dates: start: 20100501
  8. TYLENOL (CAPLET) [Concomitant]
  9. VITAMIN D [Concomitant]
     Indication: VITAMIN D DEFICIENCY
     Dosage: 2000 UNITS
     Route: 048
     Dates: start: 20110210
  10. PROTONIX [Concomitant]
     Indication: GASTROOESOPHAGEAL REFLUX DISEASE
     Route: 048
     Dates: start: 20080909
  11. LIDODERM [Concomitant]
     Indication: PSORIATIC ARTHROPATHY
     Dosage: 1 APP PRN
     Route: 061
     Dates: start: 20101001
  12. HYDROCODONE [Concomitant]
     Indication: ABDOMINAL HERNIA
     Dosage: 1 TABLET PRN
     Route: 048
     Dates: start: 20110418
  13. ALTACE [Concomitant]
     Indication: HYPERTENSION
     Route: 048
     Dates: start: 20110305

REACTIONS (1)
  - CELLULITIS [None]
